FAERS Safety Report 4378184-3 (Version None)
Quarter: 2004Q2

REPORT INFORMATION
  Report Type: 
  Country: None (occurrence: None)
  Receive Date: 20040614
  Receipt Date: 20040614
  Transmission Date: 20050107
  Serious: Yes (Life-Threatening)
  Sender: FDA-Public Use
  Company Number: None

PATIENT
  Age: 17 Year
  Sex: Female
  Weight: 55 kg

DRUGS (21)
  1. ELITEK [Suspect]
     Indication: HYPERURICAEMIA
     Dosage: 6 MG IV ONCE (0.11 MG/KG)
     Route: 042
     Dates: start: 20040319
  2. DOPAMINE HCL [Concomitant]
  3. LIDOCAINE [Concomitant]
  4. ACETAMINOPHEN [Concomitant]
  5. PHENYTOIN [Concomitant]
  6. FOSPHENYTOIN SODIUM [Concomitant]
  7. SIROLIMUS [Concomitant]
  8. MIDAZOLAM HCL [Concomitant]
  9. FENTANYL [Concomitant]
  10. LORAZEPAM [Concomitant]
  11. EPINEPHRINE [Concomitant]
  12. FUROSEMIDE [Concomitant]
  13. TPN [Concomitant]
  14. ALLOPURINOL [Concomitant]
  15. VITAMIN K TAB [Concomitant]
  16. INSULIN [Concomitant]
  17. PANTOPRAZOLE [Concomitant]
  18. DOBUTAMINE [Concomitant]
  19. MILINAZE [Concomitant]
  20. PHENYLEPHRINE [Concomitant]
  21. TACROLIMUS [Concomitant]

REACTIONS (2)
  - ACQUIRED METHAEMOGLOBINAEMIA [None]
  - CARDIAC ARREST [None]
